FAERS Safety Report 12784410 (Version 1)
Quarter: 2016Q3

REPORT INFORMATION
  Report Type: Report from Study
  Country: JP (occurrence: JP)
  Receive Date: 20160927
  Receipt Date: 20160927
  Transmission Date: 20161109
  Serious: Yes (Other)
  Sender: FDA-Public Use
  Company Number: JP-BEH-2012033046

PATIENT

DRUGS (2)
  1. ALBUMIN 25% [Suspect]
     Active Substance: ALBUMIN HUMAN
     Indication: HEPATORENAL SYNDROME
     Dosage: 37.5G/DAY ON 1ST DAY, 25G/DAY ON 2ND TO 8TH DAY, 12.5G/DAY THEREAFTER (MAX. OF 15 DAYS)
  2. TERLIPRESSIN [Suspect]
     Active Substance: TERLIPRESSIN
     Indication: HEPATORENAL SYNDROME
     Dosage: 1MG PER 8HRS, INCREASED TO 1MG PER 6HRS IF NO REDUCTION TO SERUM CREATININE AFTER 3 DAYS(MAX.15DAYS)
     Route: 042

REACTIONS (4)
  - Thrombocytopenia [Recovering/Resolving]
  - Abdominal pain [Recovered/Resolved]
  - Diarrhoea [Recovered/Resolved]
  - Hypokalaemia [Recovering/Resolving]
